FAERS Safety Report 18209206 (Version 2)
Quarter: 2020Q3

REPORT INFORMATION
  Report Type: Other
  Country: US (occurrence: US)
  Receive Date: 20200828
  Receipt Date: 20200917
  Transmission Date: 20201103
  Serious: Yes (Hospitalization, Other)
  Sender: FDA-Public Use
  Company Number: US-AMAG PHARMACEUTICALS, INC.-AMAG202002803

PATIENT
  Age: 36 Year
  Sex: Female
  Weight: 95.34 kg

DRUGS (3)
  1. MAKENA [Suspect]
     Active Substance: HYDROXYPROGESTERONE CAPROATE
     Indication: PREMATURE DELIVERY
     Route: 058
     Dates: start: 20200330, end: 20200810
  2. IBUPROFEN. [Concomitant]
     Active Substance: IBUPROFEN
     Indication: CAESAREAN SECTION
     Dosage: 600 MG TABLET Q6HRS PRN
     Dates: start: 20200812
  3. PRENATAL VITAMIN (PNV) [Concomitant]
     Indication: PREGNANCY
     Route: 048
     Dates: start: 20200219

REACTIONS (4)
  - Premature delivery [Recovered/Resolved]
  - Anaemia [Unknown]
  - Breech presentation [Recovered/Resolved]
  - Placenta praevia [Recovered/Resolved]

NARRATIVE: CASE EVENT DATE: 20200529
